FAERS Safety Report 5169482-4 (Version None)
Quarter: 2006Q4

REPORT INFORMATION
  Report Type: 
  Country: None (occurrence: None)
  Receive Date: 20061204
  Receipt Date: 20061115
  Transmission Date: 20070319
  Serious: Yes (Hospitalization)
  Sender: FDA-Public Use
  Company Number: 2006AD000088

PATIENT
  Age: 14 Year
  Sex: Male

DRUGS (1)
  1. CEPHALEXIN [Suspect]
     Indication: CELLULITIS
     Dosage: PO
     Route: 048

REACTIONS (13)
  - CARDIAC MURMUR [None]
  - CARDIAC OUTPUT DECREASED [None]
  - CYANOSIS [None]
  - DEEP VEIN THROMBOSIS [None]
  - DEPRESSED LEVEL OF CONSCIOUSNESS [None]
  - POSTURE ABNORMAL [None]
  - PULMONARY HYPERTENSION [None]
  - PULMONARY MICROEMBOLI [None]
  - PULMONARY VALVE INCOMPETENCE [None]
  - SYNCOPE [None]
  - TENDERNESS [None]
  - TRICUSPID VALVE INCOMPETENCE [None]
  - VENTRICULAR HYPERTROPHY [None]
